FAERS Safety Report 4677565-8 (Version None)
Quarter: 2005Q2

REPORT INFORMATION
  Report Type: 
  Country: None (occurrence: None)
  Receive Date: 20050527
  Receipt Date: 20050527
  Transmission Date: 20051028
  Serious: Yes (Life-Threatening, Disabling)
  Sender: FDA-Public Use
  Company Number: None

PATIENT
  Sex: Male
  Weight: 113.3993 kg

DRUGS (2)
  1. MOTRIN [Suspect]
     Indication: ARTHRITIS
     Dosage: 2 X DAILY ORAL
     Route: 048
  2. MOTRIN [Suspect]
     Indication: OSTEOARTHRITIS
     Dosage: 2 X DAILY ORAL
     Route: 048

REACTIONS (11)
  - ATRIAL FIBRILLATION [None]
  - CARDIAC FAILURE [None]
  - CARDIAC FAILURE CONGESTIVE [None]
  - CARDIAC MURMUR [None]
  - DIZZINESS [None]
  - DYSPNOEA [None]
  - GASTROINTESTINAL ULCER HAEMORRHAGE [None]
  - HYPERTENSION [None]
  - MITRAL VALVE CALCIFICATION [None]
  - MITRAL VALVE INCOMPETENCE [None]
  - ORTHOSTATIC HYPOTENSION [None]
